FAERS Safety Report 9051296 (Version 1)
Quarter: 2013Q1

REPORT INFORMATION
  Report Type: Spontaneous
  Country: EC (occurrence: EC)
  Receive Date: 20130206
  Receipt Date: 20130206
  Transmission Date: 20140127
  Serious: Yes (Death, Other)
  Sender: FDA-Public Use
  Company Number: PHHY2013EC010926

PATIENT
  Age: 92 None
  Sex: Male

DRUGS (1)
  1. EXFORGE [Suspect]
     Dosage: 1 DF, QD (160 MG VALS AND 10 MG AMLO)
     Route: 048
     Dates: start: 2009

REACTIONS (2)
  - Death [Fatal]
  - Bronchopneumonia [Unknown]
